FAERS Safety Report 12692446 (Version 1)
Quarter: 2016Q3

REPORT INFORMATION
  Report Type: Report from Study
  Country: IN (occurrence: IN)
  Receive Date: 20160829
  Receipt Date: 20160829
  Transmission Date: 20161109
  Serious: Yes (Death, Hospitalization)
  Sender: FDA-Public Use
  Company Number: IN-ROCHE-1820170

PATIENT
  Age: 49 Year
  Sex: Female

DRUGS (10)
  1. CELLCEPT [Suspect]
     Active Substance: MYCOPHENOLATE MOFETIL\MYCOPHENOLATE MOFETIL HYDROCHLORIDE
     Indication: RENAL TRANSPLANT
     Route: 048
     Dates: start: 20150828
  2. PANTOCID (INDIA) [Concomitant]
     Route: 048
     Dates: start: 20150828
  3. ARKAMINE [Concomitant]
     Route: 048
     Dates: start: 20150828
  4. AUTRIN (INDIA) [Concomitant]
     Dosage: 1 TABLET A DAY
     Route: 048
     Dates: start: 20150828
  5. MINIPRESS XL [Concomitant]
     Active Substance: PRAZOSIN HYDROCHLORIDE
     Route: 048
     Dates: start: 20150828
  6. WYSOLONE [Concomitant]
     Active Substance: PREDNISOLONE
     Route: 048
     Dates: start: 20150828
  7. AMLODIPINE [Concomitant]
     Active Substance: AMLODIPINE BESYLATE
     Route: 048
     Dates: start: 20150828
  8. PANGRAF [Concomitant]
     Active Substance: TACROLIMUS
     Dosage: 5MG IN MORNING AND 4.5MG IN EVENING
     Route: 048
     Dates: start: 20150828
  9. SEPTRAN (INDIA) [Concomitant]
     Dosage: 1 TABLET A DAY
     Route: 048
     Dates: start: 20150828
  10. METOPROLOL. [Concomitant]
     Active Substance: METOPROLOL
     Route: 048
     Dates: start: 20150828

REACTIONS (2)
  - Death [Fatal]
  - Road traffic accident [Unknown]

NARRATIVE: CASE EVENT DATE: 2016
